FAERS Safety Report 9031216 (Version 2)
Quarter: 2013Q1

REPORT INFORMATION
  Report Type: Spontaneous
  Country: JP (occurrence: JP)
  Receive Date: 20130123
  Receipt Date: 20130329
  Transmission Date: 20140127
  Serious: Yes (Hospitalization)
  Sender: FDA-Public Use
  Company Number: JP-MERCK-1301JPN010264

PATIENT
  Age: 69 Year
  Sex: Male

DRUGS (6)
  1. GLACTIV [Suspect]
     Indication: TYPE 2 DIABETES MELLITUS
     Dosage: 50 MG, QD
     Route: 048
     Dates: start: 201201
  2. AMARYL [Concomitant]
  3. METGLUCO [Concomitant]
  4. BEZATOL SR [Concomitant]
  5. AMLODIPINE [Concomitant]
  6. BAYASPIRIN [Concomitant]

REACTIONS (1)
  - Hypoglycaemia [Recovered/Resolved]
